FAERS Safety Report 6111485-7 (Version None)
Quarter: 2009Q1

REPORT INFORMATION
  Report Type: 
  Country: None (occurrence: None)
  Receive Date: 20090309
  Receipt Date: 20090224
  Transmission Date: 20090719
  Serious: Yes (Hospitalization)
  Sender: FDA-Public Use
  Company Number: 2009-192312-NL

PATIENT
  Age: 26 Year
  Sex: Male

DRUGS (9)
  1. DANAPAROID SODIUM [Suspect]
     Dosage: INTRAVENOUS (NOS)
     Route: 042
     Dates: start: 20081231, end: 20090102
  2. LEPIRUDIN [Concomitant]
  3. CISPLATIN [Concomitant]
  4. METHXLPREDNISOLONE SODIUM SUCCINATE [Concomitant]
  5. CHLORPROMAZINE HYDROCHLORIDE [Concomitant]
  6. TRIMEBUTINE MALEATE [Concomitant]
  7. ONDANSETRON HYDROCHLORIDE [Concomitant]
  8. CLORAZEPATE DIPOTASSIUM [Concomitant]
  9. MORPHINE SULFATE [Concomitant]

REACTIONS (5)
  - AXILLARY VEIN THROMBOSIS [None]
  - HEPARIN-INDUCED THROMBOCYTOPENIA [None]
  - SUBCLAVIAN VEIN THROMBOSIS [None]
  - THROMBOPHLEBITIS [None]
  - VENA CAVA THROMBOSIS [None]
